FAERS Safety Report 4310483-3 (Version None)
Quarter: 2004Q1

REPORT INFORMATION
  Report Type: 
  Country: None (occurrence: None)
  Receive Date: 20040303
  Receipt Date: 20040206
  Transmission Date: 20041129
  Serious: Yes (Hospitalization)
  Sender: FDA-Public Use
  Company Number: PHEH2004US01703

PATIENT
  Age: 68 Year
  Sex: Female
  Weight: 77 kg

DRUGS (8)
  1. FEMARA [Suspect]
     Indication: BREAST CANCER
     Dosage: 2.5 MG, QD
     Route: 048
     Dates: start: 20040121, end: 20040205
  2. ACIPHEX [Concomitant]
  3. ATIVAN [Concomitant]
  4. VITAMIN B COMPLEX CAP [Concomitant]
  5. NEURONTIN [Concomitant]
  6. VALIUM [Concomitant]
  7. ALPHAGAN [Concomitant]
  8. XALATAN [Concomitant]

REACTIONS (13)
  - AORTIC DISORDER [None]
  - AORTIC VALVE INCOMPETENCE [None]
  - APHASIA [None]
  - CEREBRAL HAEMORRHAGE [None]
  - CEREBRAL INFARCTION [None]
  - CONFUSIONAL STATE [None]
  - DROOLING [None]
  - DYSARTHRIA [None]
  - HEMIPARESIS [None]
  - HYPOAESTHESIA [None]
  - PULMONARY HYPERTENSION [None]
  - TROPONIN INCREASED [None]
  - VENTRICULAR DYSFUNCTION [None]
